FAERS Safety Report 25117029 (Version 1)
Quarter: 2025Q1

REPORT INFORMATION
  Report Type: Spontaneous
  Country: CZ (occurrence: CZ)
  Receive Date: 20250325
  Receipt Date: 20250325
  Transmission Date: 20250408
  Serious: Yes (Other)
  Sender: BIOVITRUM
  Company Number: None

PATIENT
  Age: 5 Month

DRUGS (1)
  1. SYNAGIS [Suspect]
     Active Substance: PALIVIZUMAB
     Indication: Product used for unknown indication
     Route: 030

REACTIONS (2)
  - Cyanosis [Recovered/Resolved]
  - Flushing [Recovered/Resolved]
